FAERS Safety Report 16370497 (Version 1)
Quarter: 2019Q2

REPORT INFORMATION
  Report Type: Spontaneous
  Country: US (occurrence: US)
  Receive Date: 20190530
  Receipt Date: 20190530
  Transmission Date: 20190711
  Serious: No
  Sender: FDA-Public Use
  Company Number: US-GLENMARK PHARMACEUTICALS-2019GMK039492

PATIENT

DRUGS (1)
  1. MUPIROCIN OINTMENT USP, 2% [Suspect]
     Active Substance: MUPIROCIN
     Indication: EPISTAXIS
     Dosage: UNK, BID
     Route: 045

REACTIONS (2)
  - Intercepted medication error [Unknown]
  - Product dispensing error [Unknown]
